FAERS Safety Report 12326922 (Version 1)
Quarter: 2016Q2

REPORT INFORMATION
  Report Type: Spontaneous
  Country: US (occurrence: None)
  Receive Date: 20160502
  Receipt Date: 20160502
  Transmission Date: 20160815
  Serious: No
  Sender: FDA-Public Use
  Company Number: None

PATIENT
  Age: 62 Year
  Sex: Female
  Weight: 74.84 kg

DRUGS (3)
  1. C-GUM CELL 0.62% LEITER^S COMPOUNDING [Suspect]
     Active Substance: CARBOXYMETHYLCELLULOSE SODIUM
     Indication: KERATITIS
     Route: 031
  2. C-GUM CELL 0.62% LEITER^S COMPOUNDING [Suspect]
     Active Substance: CARBOXYMETHYLCELLULOSE SODIUM
     Indication: DRY EYE
     Route: 031
  3. C-GUM CELL 0.62% LEITER^S COMPOUNDING [Suspect]
     Active Substance: CARBOXYMETHYLCELLULOSE SODIUM
     Indication: INFLAMMATION
     Route: 031

REACTIONS (4)
  - Eye disorder [None]
  - Feeling abnormal [None]
  - Product sterility lacking [None]
  - Product compounding quality issue [None]

NARRATIVE: CASE EVENT DATE: 20160208
